FAERS Safety Report 7372970-3 (Version None)
Quarter: 2011Q1

REPORT INFORMATION
  Report Type: 
  Country: None (occurrence: None)
  Receive Date: 20110324
  Receipt Date: 20110315
  Transmission Date: 20110831
  Serious: Yes (Hospitalization, Other)
  Sender: FDA-Public Use
  Company Number: KR-ELI_LILLY_AND_COMPANY-KR201103005340

PATIENT
  Age: 25 Year
  Sex: Female

DRUGS (6)
  1. PERIDOL [Concomitant]
     Indication: ABNORMAL BEHAVIOUR
     Dosage: 60 MG, UNK
  2. RIVOTRIL [Concomitant]
     Dosage: 1.5 MG, UNK
  3. ZYPREXA [Suspect]
     Dosage: 15 MG, UNK
  4. VALPROIC ACID [Concomitant]
     Dosage: 1000 MG, UNK
  5. ZYPREXA [Suspect]
     Dosage: 10 MG, UNK
  6. SEROQUEL [Concomitant]
     Dosage: 800 MG, UNK

REACTIONS (24)
  - NEUROLEPTIC MALIGNANT SYNDROME [None]
  - RENAL FAILURE ACUTE [None]
  - WHITE BLOOD CELL COUNT INCREASED [None]
  - HAEMOGLOBIN DECREASED [None]
  - BLOOD MAGNESIUM DECREASED [None]
  - FIBRIN D DIMER INCREASED [None]
  - BLOOD BICARBONATE DECREASED [None]
  - PLATELET COUNT DECREASED [None]
  - PO2 DECREASED [None]
  - RHABDOMYOLYSIS [None]
  - CONVULSION [None]
  - INTERNATIONAL NORMALISED RATIO INCREASED [None]
  - BLOOD CALCIUM DECREASED [None]
  - PCO2 DECREASED [None]
  - DEHYDRATION [None]
  - ELECTROCARDIOGRAM LOW VOLTAGE [None]
  - PURPURA [None]
  - HAEMATOCRIT DECREASED [None]
  - HYPERNATRAEMIA [None]
  - ACTIVATED PARTIAL THROMBOPLASTIN TIME PROLONGED [None]
  - BLOOD CHLORIDE INCREASED [None]
  - BLOOD POTASSIUM DECREASED [None]
  - OXYGEN SATURATION DECREASED [None]
  - BLOOD PRESSURE DECREASED [None]
